FAERS Safety Report 19570557 (Version 1)
Quarter: 2021Q3

REPORT INFORMATION
  Report Type: Spontaneous
  Country: JP (occurrence: JP)
  Receive Date: 20210715
  Receipt Date: 20210715
  Transmission Date: 20211014
  Serious: Yes (Other)
  Sender: FDA-Public Use
  Company Number: JP-TEVA-2021-JP-1931245

PATIENT
  Age: 64 Year
  Sex: Male

DRUGS (4)
  1. 5?FU [Suspect]
     Active Substance: FLUOROURACIL
     Indication: RECTAL CANCER STAGE III
     Dosage: MFOLFOX6 REGIMEN
     Route: 041
  2. 5?FU [Suspect]
     Active Substance: FLUOROURACIL
     Indication: RECTAL CANCER STAGE III
     Dosage: MFOLFOX6 REGIMEN; CONTINUOUS INTRAVENOUS INFUSION
     Route: 041
  3. L?LV [Suspect]
     Active Substance: LEUCOVORIN
     Indication: RECTAL CANCER STAGE III
     Dosage: MFOLFOX6 REGIMEN
     Route: 065
  4. L?OHP [Suspect]
     Active Substance: OXALIPLATIN
     Indication: RECTAL CANCER STAGE III
     Dosage: MFOLFOX6 REGIMEN
     Route: 065

REACTIONS (6)
  - Dehydration [Unknown]
  - Hyperammonaemia [Recovering/Resolving]
  - Decreased appetite [Unknown]
  - Renal impairment [Unknown]
  - Seizure [Unknown]
  - Altered state of consciousness [Recovering/Resolving]
